FAERS Safety Report 23254189 (Version 1)
Quarter: 2023Q4

REPORT INFORMATION
  Report Type: Other
  Country: DE (occurrence: DE)
  Receive Date: 20231202
  Receipt Date: 20231202
  Transmission Date: 20240110
  Serious: Yes (Death, Hospitalization, Other)
  Sender: FDA-Public Use
  Company Number: DE-MACLEODS PHARMACEUTICALS US LTD-MAC2023044526

PATIENT

DRUGS (45)
  1. VALSARTAN [Suspect]
     Active Substance: VALSARTAN
     Indication: Essential hypertension
     Dosage: UNK, START DATE 2012 AND END DATE 2014
     Route: 065
  2. VALSARTAN [Suspect]
     Active Substance: VALSARTAN
     Indication: Hypertension
     Dosage: 160 MILLIGRAM, QD (MORNING), START DATE AUG 2019
     Route: 065
  3. VALSARTAN [Suspect]
     Active Substance: VALSARTAN
     Dosage: 160 MILLIGRAM, BID (MORNING AND EVENING), START DATE AUG 2019
     Route: 065
  4. VALSARTAN [Suspect]
     Active Substance: VALSARTAN
     Dosage: 160 MILLIGRAM, QD
     Route: 065
  5. VALSARTAN [Suspect]
     Active Substance: VALSARTAN
     Dosage: 1 DOSAGE FORM (FILM-COATED TABLET, ONCE IN THE MORNING, ONCE IN THE EVENING)
     Route: 065
  6. VALSARTAN [Suspect]
     Active Substance: VALSARTAN
     Dosage: 1 DOSAGE FORM, QD (FILM-COATED TABLET, 1 A PLUS)
     Route: 065
  7. HYDROCHLOROTHIAZIDE\VALSARTAN [Suspect]
     Active Substance: HYDROCHLOROTHIAZIDE\VALSARTAN
     Indication: Essential hypertension
     Dosage: 1 DOSAGE FORM, QD, 1 A PLUS
     Route: 065
  8. HYDROCHLOROTHIAZIDE\VALSARTAN [Suspect]
     Active Substance: HYDROCHLOROTHIAZIDE\VALSARTAN
     Indication: Hypertension
  9. MSI [Concomitant]
     Active Substance: MORPHINE SULFATE
     Indication: Product used for unknown indication
     Dosage: UNK UNK, QD ((5), UP TO 6X DAILY)
     Route: 058
     Dates: start: 20200707, end: 20200713
  10. MSI [Concomitant]
     Active Substance: MORPHINE SULFATE
     Dosage: 5 MILLIGRAM, QD (EVERY 4 HOURS UP TO 6X DAILY)
     Route: 058
     Dates: start: 20200630, end: 20200630
  11. NITRENDIPINE [Concomitant]
     Active Substance: NITRENDIPINE
     Indication: Hypertension
     Dosage: UNK UNK, BID 10 UNK, (ONE IN THE MORNING AND ONE IN THE EVENING)
     Route: 065
  12. NITRENDIPINE [Concomitant]
     Active Substance: NITRENDIPINE
     Dosage: UNK UNK, BID 10 UNK, (ONE IN THE MORNING AND ONE IN THE EVENING)
     Route: 065
  13. NITRENDIPINE [Concomitant]
     Active Substance: NITRENDIPINE
     Dosage: UNK UNK, BID 10 UNK, (ONE IN THE MORNING AND ONE IN THE EVENING)
     Route: 065
  14. SPIRIVA [Concomitant]
     Active Substance: TIOTROPIUM BROMIDE MONOHYDRATE
     Indication: Product used for unknown indication
     Dosage: 2.5 MICROGRAM, BID (TWICE IN THE MORNING)
     Route: 065
  15. SPIRIVA [Concomitant]
     Active Substance: TIOTROPIUM BROMIDE MONOHYDRATE
     Dosage: 18 MICROGRAM, QD (2 PUFFS)
  16. PANTOZOL [Concomitant]
     Active Substance: PANTOPRAZOLE SODIUM
     Indication: Product used for unknown indication
     Dosage: 40 MILLIGRAM, BID (IN MORNING AND EVENING)
     Route: 065
  17. PANTOZOL [Concomitant]
     Active Substance: PANTOPRAZOLE SODIUM
     Dosage: 40 MILLIGRAM, BID (MORNING)
     Route: 065
  18. MOLSIDOMINE [Concomitant]
     Active Substance: MOLSIDOMINE
     Indication: Product used for unknown indication
     Dosage: 8 MILLIGRAM, QD (EVENING)
     Route: 065
  19. OXYGEN [Concomitant]
     Active Substance: OXYGEN
     Indication: Product used for unknown indication
     Dosage: 2 LITER
     Route: 042
     Dates: start: 20200928
  20. OXYGEN [Concomitant]
     Active Substance: OXYGEN
     Dosage: UNK (PRN, 2 TO 3 L, IF NEEDED)
     Route: 065
     Dates: start: 20200519, end: 20200519
  21. OXYGEN [Concomitant]
     Active Substance: OXYGEN
     Dosage: 2 LITER (2 L, QH)
     Route: 065
     Dates: start: 20200630, end: 20200630
  22. OXYGEN [Concomitant]
     Active Substance: OXYGEN
     Dosage: 2 LITER (2 L, QH)
     Route: 065
     Dates: start: 20200630, end: 20200630
  23. OXYGEN [Concomitant]
     Active Substance: OXYGEN
     Dosage: UNK (UNK, 2 TO 3 LITRE AT ROOM TEMPERATURE)
     Route: 065
     Dates: start: 20200619, end: 20200619
  24. GLUCOBAY [Concomitant]
     Active Substance: ACARBOSE
     Indication: Product used for unknown indication
     Dosage: 100 MILLIGRAM, QD (MORNING)
     Route: 065
  25. POLYETHYLENE GLYCOLS [Concomitant]
     Active Substance: POLYETHYLENE GLYCOLS
     Indication: Product used for unknown indication
     Dosage: UNK (1 UP TO MAX.4 AS NEEDED) (SOLID PIECES, PER OS)
     Route: 065
     Dates: start: 20200928
  26. SIMVASTATIN [Concomitant]
     Active Substance: SIMVASTATIN
     Indication: Product used for unknown indication
     Dosage: 20 MILLIGRAM, QD (EVENING)
     Route: 065
  27. TORSEMIDE [Concomitant]
     Active Substance: TORSEMIDE
     Indication: Product used for unknown indication
     Dosage: 20 MILLIGRAM, QD
     Route: 065
  28. TORSEMIDE [Concomitant]
     Active Substance: TORSEMIDE
     Dosage: 20 MILLIGRAM, BID (MORNING AND NOON)
     Route: 065
  29. TORSEMIDE [Concomitant]
     Active Substance: TORSEMIDE
     Dosage: 10 MILLIGRAM, QD (ONCE IN THE MORNING, HALF AT NOON)
     Route: 065
  30. PENTOXIFYLLINE [Concomitant]
     Active Substance: PENTOXIFYLLINE
     Indication: Product used for unknown indication
     Dosage: UNK
     Route: 065
  31. PENTOXIFYLLINE [Concomitant]
     Active Substance: PENTOXIFYLLINE
     Dosage: UNK
     Route: 065
  32. CANDESARTAN [Concomitant]
     Active Substance: CANDESARTAN
     Indication: Product used for unknown indication
     Dosage: 1.5 DOSAGE FORM, QD (ONE TABLET IN THE MORNING, HALF OF A TABLET IN THE EVENING)
     Route: 065
  33. CANDESARTAN [Concomitant]
     Active Substance: CANDESARTAN
     Dosage: 16 MILLIGRAM, QD (MORNING)
     Route: 065
     Dates: start: 20200528, end: 20200601
  34. ATORVASTATIN [Concomitant]
     Active Substance: ATORVASTATIN
     Indication: Product used for unknown indication
     Dosage: 20 MILLIGRAM, QD
     Route: 065
  35. ALLOPURINOL [Concomitant]
     Active Substance: ALLOPURINOL
     Indication: Product used for unknown indication
     Dosage: UNK UNK, QD (1/2 X 300 MG EVENING)
     Route: 065
  36. ALLOPURINOL [Concomitant]
     Active Substance: ALLOPURINOL
     Dosage: UNK UNK, QD 1/2 X 150 MG EVENING
     Route: 065
  37. ALLOPURINOL [Concomitant]
     Active Substance: ALLOPURINOL
     Dosage: UNK UNK, QD 1/2 X 150 MG EVENING
     Route: 065
  38. ALLOPURINOL [Concomitant]
     Active Substance: ALLOPURINOL
     Dosage: UNK UNK, QD 1/2 X 300 MG EVENING
     Route: 065
  39. BISOPROLOL [Concomitant]
     Active Substance: BISOPROLOL\BISOPROLOL FUMARATE
     Indication: Product used for unknown indication
     Dosage: UNK
     Route: 065
     Dates: start: 20190806
  40. MOLSIDOMINE [Concomitant]
     Active Substance: MOLSIDOMINE
     Indication: Product used for unknown indication
     Dosage: 8 MILLIGRAM, QD(EVENING)
     Route: 065
     Dates: start: 20200528, end: 20200601
  41. ATROVENT [Concomitant]
     Active Substance: IPRATROPIUM BROMIDE
     Indication: Product used for unknown indication
     Dosage: UNK UNK, QID
  42. ATROVENT [Concomitant]
     Active Substance: IPRATROPIUM BROMIDE
     Dosage: UNK UNK, QID
  43. ISDN [Concomitant]
     Indication: Product used for unknown indication
     Dosage: 20 MILLIGRAM, QD
     Route: 065
  44. ALLOBETA [Concomitant]
     Indication: Product used for unknown indication
     Dosage: UNK, ((300), 1/4 IN THE EVENING)
     Route: 065
  45. ALLOBETA [Concomitant]
     Dosage: UNK ((300), 1/4 IN THE EVENING)
     Route: 065

REACTIONS (27)
  - Metastases to spine [Fatal]
  - Bronchial carcinoma [Fatal]
  - Neoplasm [Fatal]
  - Carcinoembryonic antigen increased [Fatal]
  - Bronchial obstruction [Fatal]
  - Back pain [Fatal]
  - Hyperplasia [Fatal]
  - Metastasis [Fatal]
  - Chronic obstructive pulmonary disease [Fatal]
  - Blood pressure systolic increased [Recovering/Resolving]
  - Pulmonary oedema [Unknown]
  - Myocardial ischaemia [Unknown]
  - Cataract [Unknown]
  - Naevoid melanoma [Unknown]
  - Myocardial infarction [Unknown]
  - Gait disturbance [Unknown]
  - Infection [Unknown]
  - Diarrhoea [Unknown]
  - Nausea [Unknown]
  - Pyrexia [Unknown]
  - Chills [Unknown]
  - Somnolence [Unknown]
  - Atrial flutter [Unknown]
  - Decreased appetite [Unknown]
  - Abdominal discomfort [Unknown]
  - Anxiety [Unknown]
  - Pruritus [Unknown]

NARRATIVE: CASE EVENT DATE: 20200219
